FAERS Safety Report 24132536 (Version 4)
Quarter: 2024Q4

REPORT INFORMATION
  Report Type: Report from Study
  Country: US (occurrence: US)
  Receive Date: 20240724
  Receipt Date: 20241003
  Transmission Date: 20250115
  Serious: Yes (Hospitalization, Other)
  Sender: ABBVIE
  Company Number: US-ABBVIE-5848678

PATIENT
  Age: 69 Year
  Sex: Male
  Weight: 60 kg

DRUGS (2)
  1. SKYRIZI [Suspect]
     Active Substance: RISANKIZUMAB-RZAA
     Indication: Crohn^s disease
     Route: 058
     Dates: start: 20230913
  2. SKYRIZI [Suspect]
     Active Substance: RISANKIZUMAB-RZAA
     Indication: Crohn^s disease
     Route: 042
     Dates: start: 20230509, end: 20230509

REACTIONS (6)
  - Haemoglobin abnormal [Recovering/Resolving]
  - Gastrointestinal disorder [Not Recovered/Not Resolved]
  - Anastomotic ulcer haemorrhage [Not Recovered/Not Resolved]
  - Short-bowel syndrome [Unknown]
  - Weight gain poor [Unknown]
  - Pain [Unknown]

NARRATIVE: CASE EVENT DATE: 20240713
